FAERS Safety Report 11657015 (Version 3)
Quarter: 2015Q4

REPORT INFORMATION
  Report Type: Spontaneous
  Country: US (occurrence: US)
  Receive Date: 20151023
  Receipt Date: 20151214
  Transmission Date: 20160304
  Serious: No
  Sender: FDA-Public Use
  Company Number: CHPA2015US012462

PATIENT
  Age: 52 Year
  Sex: Male

DRUGS (1)
  1. VOLTAREN [Suspect]
     Active Substance: DICLOFENAC SODIUM
     Indication: OSTEOARTHRITIS
     Dosage: JUST A SMALL AMOUNT, QID
     Route: 061
     Dates: start: 201510

REACTIONS (1)
  - Drug dispensed to wrong patient [Unknown]

NARRATIVE: CASE EVENT DATE: 201510
